FAERS Safety Report 14223203 (Version 1)
Quarter: 2017Q4

REPORT INFORMATION
  Report Type: Spontaneous
  Country: TR (occurrence: TR)
  Receive Date: 20171124
  Receipt Date: 20171124
  Transmission Date: 20180321
  Serious: Yes (Life-Threatening, Hospitalization)
  Sender: FDA-Public Use
  Company Number: TR-LUPIN PHARMACEUTICALS INC.-2017-06756

PATIENT
  Age: 74 Year
  Sex: Female

DRUGS (5)
  1. LITHIUM CARBONATE. [Interacting]
     Active Substance: LITHIUM CARBONATE
     Indication: MANIA
     Dosage: 300 MG, BID
     Route: 065
     Dates: start: 2010
  2. SERTRALINE [Concomitant]
     Active Substance: SERTRALINE HYDROCHLORIDE
     Indication: DEPRESSION
     Dosage: 25 MG, QD
     Route: 065
     Dates: start: 2011
  3. MOXIFLOXACIN HYDROCHLORIDE. [Suspect]
     Active Substance: MOXIFLOXACIN HYDROCHLORIDE
     Dosage: 400 MG, QD
     Route: 065
  4. HALOPERIDOL. [Concomitant]
     Active Substance: HALOPERIDOL
     Indication: MANIA
     Dosage: 10 MG, QD
     Route: 065
     Dates: start: 2010
  5. RISPERIDONE. [Concomitant]
     Active Substance: RISPERIDONE
     Indication: MANIA
     Dosage: 2 MG, QD
     Route: 065
     Dates: start: 2010

REACTIONS (3)
  - Drug interaction [Unknown]
  - Toxicity to various agents [Recovered/Resolved]
  - Drug level increased [Recovered/Resolved]
